FAERS Safety Report 21184408 (Version 1)
Quarter: 2022Q3

REPORT INFORMATION
  Report Type: Spontaneous
  Country: US (occurrence: None)
  Receive Date: 20220807
  Receipt Date: 20220807
  Transmission Date: 20221027
  Serious: No
  Sender: FDA-Public Use
  Company Number: None

PATIENT
  Age: 36 Year
  Sex: Female
  Weight: 81.65 kg

DRUGS (2)
  1. PARAGARD T 380A [Suspect]
     Active Substance: COPPER
  2. UNSPECIFIED INGREDIENT [Suspect]
     Active Substance: UNSPECIFIED INGREDIENT

REACTIONS (27)
  - Anxiety [None]
  - Panic attack [None]
  - Depression [None]
  - Amnesia [None]
  - Memory impairment [None]
  - Feeling abnormal [None]
  - Confusional state [None]
  - Irritability [None]
  - Fatigue [None]
  - Apathy [None]
  - Multiple allergies [None]
  - Irritable bowel syndrome [None]
  - Premenstrual syndrome [None]
  - Arthralgia [None]
  - Abdominal pain upper [None]
  - Nausea [None]
  - Vaginal haemorrhage [None]
  - Coital bleeding [None]
  - Heavy menstrual bleeding [None]
  - Acne [None]
  - Furuncle [None]
  - Hypoaesthesia [None]
  - Paraesthesia [None]
  - Restlessness [None]
  - Hot flush [None]
  - Palpitations [None]
  - Alopecia [None]

NARRATIVE: CASE EVENT DATE: 20220101
